FAERS Safety Report 6590817-X (Version None)
Quarter: 2010Q1

REPORT INFORMATION
  Report Type: 
  Country: None (occurrence: None)
  Receive Date: 20100219
  Receipt Date: 20100209
  Transmission Date: 20100710
  Serious: Yes (Other)
  Sender: FDA-Public Use
  Company Number: FR-PFIZER INC-2010018022

PATIENT
  Age: 31 Year
  Sex: Female

DRUGS (1)
  1. VFEND [Suspect]
     Indication: CYSTIC FIBROSIS
     Dosage: 200 MG, 2X/DAY
     Route: 048

REACTIONS (2)
  - AFFECTIVE DISORDER [None]
  - IRRITABILITY [None]
